FAERS Safety Report 5770403-1 (Version None)
Quarter: 2008Q2

REPORT INFORMATION
  Report Type: 
  Country: None (occurrence: None)
  Receive Date: 20080613
  Receipt Date: 20080430
  Transmission Date: 20081010
  Serious: No
  Sender: FDA-Public Use
  Company Number: US-ABBOTT-08P-163-0449999-00

PATIENT
  Sex: Female

DRUGS (7)
  1. HUMIRA [Suspect]
     Indication: CROHN'S DISEASE
     Route: 058
     Dates: start: 20080429, end: 20080429
  2. BUDESONIDE [Concomitant]
     Indication: CROHN'S DISEASE
     Route: 048
  3. LOBID [Concomitant]
     Indication: CROHN'S DISEASE
     Route: 048
  4. PREDNISONE TAB [Concomitant]
     Indication: CROHN'S DISEASE
     Route: 048
  5. PROCHLORPERAZINE EDISYLATE [Concomitant]
     Indication: CROHN'S DISEASE
     Route: 048
     Dates: start: 20080201
  6. SERTRALINE [Concomitant]
     Indication: DEPRESSION
     Route: 048
  7. FEXOFENADINE [Concomitant]
     Indication: SEASONAL ALLERGY
     Route: 048

REACTIONS (1)
  - NAUSEA [None]
